FAERS Safety Report 9356341 (Version 1)
Quarter: 2013Q2

REPORT INFORMATION
  Report Type: Spontaneous
  Country: US (occurrence: US)
  Receive Date: 20130619
  Receipt Date: 20130619
  Transmission Date: 20140414
  Serious: Yes (Other)
  Sender: FDA-Public Use
  Company Number: US-BAYER-2013-075051

PATIENT
  Age: 73 Year
  Sex: Male
  Weight: 81.63 kg

DRUGS (3)
  1. BAYER ASPIRIN REGIMEN ADULT LOW STRENGTH [Suspect]
     Dosage: UNK
     Route: 048
  2. VITAMIN C [Concomitant]
  3. VITAMIN D [Concomitant]

REACTIONS (5)
  - Haemorrhage [None]
  - Expired drug administered [None]
  - Skin discolouration [None]
  - Skin disorder [None]
  - Increased tendency to bruise [None]
